FAERS Safety Report 9785532 (Version 1)
Quarter: 2013Q4

REPORT INFORMATION
  Report Type: Spontaneous
  Country: US (occurrence: US)
  Receive Date: 20131227
  Receipt Date: 20131227
  Transmission Date: 20140711
  Serious: Yes (Other)
  Sender: FDA-Public Use
  Company Number: US-ASTELLAS-2013US013299

PATIENT
  Sex: Female
  Weight: 54 kg

DRUGS (12)
  1. PROGRAF [Suspect]
     Indication: LIVER TRANSPLANT
     Dosage: 1.5 MG, QID
     Route: 048
     Dates: start: 19970411
  2. OMEPRAZOLE [Concomitant]
     Indication: VOMITING
     Dosage: 0.40 MG, UID/QD
     Route: 065
  3. MULTIVITAMIN                       /00097801/ [Concomitant]
     Indication: PRODUCT USED FOR UNKNOWN INDICATION
     Dosage: UNK
     Route: 065
  4. CALCIUM                            /00060701/ [Concomitant]
     Indication: PRODUCT USED FOR UNKNOWN INDICATION
     Dosage: 1800 MG, UID/QD
     Route: 065
  5. IRON [Concomitant]
     Indication: BLOOD DISORDER
     Dosage: 65 MG, UID/QD
     Route: 065
  6. IRON [Concomitant]
     Indication: RECTAL HAEMORRHAGE
  7. LOMOTIL [Concomitant]
     Indication: ABDOMINAL DISCOMFORT
     Dosage: UNK
     Route: 065
  8. RESTASIS [Concomitant]
     Indication: DRY EYE
     Dosage: 0.5 MG, UID/QD
     Route: 065
  9. ADVANTAC [Concomitant]
     Indication: FLATULENCE
     Dosage: 1 DF, BID
     Route: 065
  10. LOTEMAX [Concomitant]
     Indication: CATARACT
     Dosage: UNK
     Route: 065
  11. HYDROCHLOROTHIAZIDE [Concomitant]
     Indication: RENAL DISORDER
     Dosage: 25 MG, UID/QD
     Route: 065
  12. HYDROCHLOROTHIAZIDE [Concomitant]
     Indication: BLOOD CHOLESTEROL

REACTIONS (10)
  - Inappropriate schedule of drug administration [Unknown]
  - Pelvic fracture [Recovered/Resolved]
  - Patella fracture [Recovered/Resolved]
  - Upper limb fracture [Recovered/Resolved]
  - Upper limb fracture [Not Recovered/Not Resolved]
  - Dysstasia [Not Recovered/Not Resolved]
  - Enterocele [Not Recovered/Not Resolved]
  - Osteoporosis [Not Recovered/Not Resolved]
  - Bone pain [Not Recovered/Not Resolved]
  - Stress [Not Recovered/Not Resolved]
